FAERS Safety Report 15473225 (Version 1)
Quarter: 2018Q4

REPORT INFORMATION
  Report Type: Report from Study
  Country: US (occurrence: US)
  Receive Date: 20181008
  Receipt Date: 20181008
  Transmission Date: 20190205
  Serious: Yes (Hospitalization)
  Sender: FDA-Public Use
  Company Number: US-BAYER-2018-186411

PATIENT
  Age: 72 Year
  Sex: Female
  Weight: 69.4 kg

DRUGS (6)
  1. BAYER LOW DOSE [Suspect]
     Active Substance: ASPIRIN
     Indication: ANTICOAGULANT THERAPY
     Dosage: 81 MG, QD
     Route: 048
     Dates: start: 2010, end: 201808
  2. XARELTO [Suspect]
     Active Substance: RIVAROXABAN
     Indication: DEEP VEIN THROMBOSIS
     Dosage: 20 MG, UNK
     Route: 048
     Dates: start: 2017, end: 201708
  3. PEMBROLIZUMAB. [Suspect]
     Active Substance: PEMBROLIZUMAB
     Indication: NEOPLASM
     Dosage: 200 MG, TID
     Route: 042
     Dates: start: 20180727, end: 201808
  4. BAYER LOW DOSE [Suspect]
     Active Substance: ASPIRIN
     Indication: THROMBOSIS PROPHYLAXIS
  5. PEMBROLIZUMAB. [Suspect]
     Active Substance: PEMBROLIZUMAB
     Indication: NEOPLASM
     Dosage: UNK
     Route: 042
     Dates: start: 20180824
  6. LENVATINIB [Suspect]
     Active Substance: LENVATINIB
     Indication: NEOPLASM
     Dosage: 20 MG, QD
     Route: 048
     Dates: start: 20180727, end: 20180809

REACTIONS (1)
  - Upper gastrointestinal haemorrhage [Recovered/Resolved]

NARRATIVE: CASE EVENT DATE: 20180810
